FAERS Safety Report 25938824 (Version 1)
Quarter: 2025Q4

REPORT INFORMATION
  Report Type: Other
  Country: US (occurrence: US)
  Receive Date: 20251019
  Receipt Date: 20251019
  Transmission Date: 20260118
  Serious: Yes (Hospitalization, Other)
  Sender: HLS THERAPEUTICS
  Company Number: US-HLS-202500352

PATIENT
  Age: 44 Year
  Sex: Male

DRUGS (10)
  1. ARIPIPRAZOLE [Concomitant]
     Active Substance: ARIPIPRAZOLE
     Indication: Product used for unknown indication
     Route: 065
     Dates: start: 20241116
  2. LORAZEPAM [Concomitant]
     Active Substance: LORAZEPAM
     Indication: Product used for unknown indication
     Route: 065
  3. LORAZEPAM [Concomitant]
     Active Substance: LORAZEPAM
     Indication: Product used for unknown indication
     Route: 042
  4. LORAZEPAM [Concomitant]
     Active Substance: LORAZEPAM
     Indication: Product used for unknown indication
     Route: 042
  5. SULPIRIDE [Concomitant]
     Active Substance: SULPIRIDE
     Indication: Hallucination, auditory
     Dosage: SULPIRIDE WAS STOPPED
     Route: 065
     Dates: start: 202312, end: 202403
  6. SULPIRIDE [Concomitant]
     Active Substance: SULPIRIDE
     Indication: Hallucination, auditory
     Dosage: SULPIRIDE WAS STOPPED
     Route: 065
     Dates: start: 202312, end: 202403
  7. AMOXICILLIN\CLAVULANATE POTASSIUM [Concomitant]
     Active Substance: AMOXICILLIN\CLAVULANATE POTASSIUM
     Indication: Product used for unknown indication
     Route: 042
  8. CLOZAPINE [Suspect]
     Active Substance: CLOZAPINE
     Indication: Schizophrenia
     Dosage: CLOZAPINE WAS INCREASED 25 MG/ WEEK ?( THERE WAS NO FURTHER TITRATION BEYOND 450 MG/DAY)
     Route: 048
  9. CLOZAPINE [Suspect]
     Active Substance: CLOZAPINE
     Indication: Schizophrenia
     Route: 048
     Dates: start: 2008
  10. CLOZAPINE [Suspect]
     Active Substance: CLOZAPINE
     Indication: Schizophrenia
     Dosage: CLOZAPINE WAS STOPPED
     Route: 048
     Dates: start: 20240305, end: 202403

REACTIONS (6)
  - Catatonia [Recovered/Resolved]
  - Neuroleptic malignant syndrome [Recovered/Resolved]
  - Hallucination, auditory [Unknown]
  - Psychotic symptom [Recovered/Resolved]
  - Cognitive disorder [Unknown]
  - General physical health deterioration [Unknown]
